FAERS Safety Report 4652724-9 (Version None)
Quarter: 2005Q2

REPORT INFORMATION
  Report Type: 
  Country: None (occurrence: None)
  Receive Date: 20050502
  Receipt Date: 20050418
  Transmission Date: 20051028
  Serious: Yes (Hospitalization)
  Sender: FDA-Public Use
  Company Number: 2005060431

PATIENT
  Age: 22 Year
  Sex: Male
  Weight: 92 kg

DRUGS (10)
  1. LIPITOR [Suspect]
     Indication: HYPERLIPIDAEMIA
     Dosage: 10 MG (10 MG, 1 IN 1 D), ORAL
     Route: 048
     Dates: start: 20010101, end: 20050402
  2. SOLU-MEDROL [Suspect]
     Indication: GLOMERULONEPHRITIS PROLIFERATIVE
     Dosage: 1000 MG (1000 MG, 1 IN 1D), INTRAVENOUS
     Route: 042
     Dates: start: 20050323
  3. UROKINASE (UROKINASE) [Suspect]
     Indication: GLOMERULONEPHRITIS PROLIFERATIVE
     Dosage: 240000 I.U. (240000 I.U., 1 IN 1D), INTRAVENOUS
     Route: 042
     Dates: start: 20050323
  4. PRAVASTATIN SODIUM [Concomitant]
  5. AMLODIPINE BESYLATE [Concomitant]
  6. VALSARTAN [Concomitant]
  7. BENZBROMARONE (BENZBROMARONE) [Concomitant]
  8. DILAZEP DIHYDROCHLORIDE (DILAZEP DIHYDROCHLORIDE) [Concomitant]
  9. RISEDRONATE SODIUM (RISEDRONATE SODIUM) [Concomitant]
  10. FAMOTIDINE [Concomitant]

REACTIONS (6)
  - DRUG INTERACTION [None]
  - GLOMERULONEPHRITIS PROLIFERATIVE [None]
  - HICCUPS [None]
  - HYPERTENSION [None]
  - MALAISE [None]
  - STOMACH DISCOMFORT [None]
